FAERS Safety Report 8405933-7 (Version None)
Quarter: 2012Q2

REPORT INFORMATION
  Report Type: 
  Country: None (occurrence: None)
  Receive Date: 20120529
  Receipt Date: 20011016
  Transmission Date: 20120825
  Serious: Yes (Death, Other)
  Sender: FDA-Public Use
  Company Number: 02100-JPN-01-0082

PATIENT
  Age: 69 Year
  Sex: Male
  Weight: 55.5 kg

DRUGS (11)
  1. HUMALIN (INSULIN) INJECTION 09/01/2000 TO UNK [Concomitant]
  2. PLETAL [Suspect]
     Indication: MYOCARDIAL ISCHAEMIA
     Dosage: 100 MG, BID, ORAL
     Route: 048
     Dates: start: 20000613, end: 20010627
  3. LASIX (FUROSEMID) TABLET, 40 MG 06/07/2000 TO ONGOING [Concomitant]
  4. GLIMICRON (GLICLAZIDE) TABLET, 40 MG 06/07/2000 TO 08/31/2000 [Concomitant]
  5. SIGMART (NICORANDIL) TABLET, 5MG [Suspect]
     Indication: MYOCARDIAL ISCHAEMIA
     Dosage: 5 MG, TID, ORAL
     Route: 048
     Dates: start: 20000613
  6. ALDACTONE-A (SPIRONOLACTONE) TABLET, 25 MG 05/13/2001 TO ONGOING [Concomitant]
  7. ASPIRIN [Suspect]
     Indication: MYOCARDIAL ISCHAEMIA
     Dosage: 100 MG, QD, ORAL
     Route: 048
     Dates: start: 20000613, end: 20010627
  8. HUMALIN (INSULIN) INJECTION ONGOING [Concomitant]
  9. MEXITIL [Suspect]
     Indication: MYOCARDIAL ISCHAEMIA
     Dosage: 100 MG, TID, ORAL
     Route: 048
     Dates: start: 20001005
  10. HERBESSER (DILTIAZEM HYDROCHLORIDE) CAPSULE, 100MG [Suspect]
     Indication: MYOCARDIAL ISCHAEMIA
     Dosage: 100 MG, QD, ORAL
     Route: 048
     Dates: start: 20000613
  11. MUCOSTA (REBAMIPIDE) TABLET, 100 MG 05/13/2001 TO ONGOING [Concomitant]

REACTIONS (8)
  - PNEUMONIA [None]
  - APLASTIC ANAEMIA [None]
  - PLATELET COUNT DECREASED [None]
  - CARDIAC FAILURE CONGESTIVE [None]
  - DIABETES MELLITUS [None]
  - WHITE BLOOD CELL COUNT DECREASED [None]
  - PANCYTOPENIA [None]
  - HAEMOGLOBIN DECREASED [None]
